FAERS Safety Report 10607561 (Version 1)
Quarter: 2014Q4

REPORT INFORMATION
  Report Type: Spontaneous
  Country: US (occurrence: US)
  Receive Date: 20141125
  Receipt Date: 20141125
  Transmission Date: 20150529
  Serious: Yes (Hospitalization)
  Sender: FDA-Public Use
  Company Number: US-BRISTOL-MYERS SQUIBB COMPANY-21608690

PATIENT
  Age: 80 Year
  Sex: Female

DRUGS (1)
  1. COUMADIN [Suspect]
     Active Substance: WARFARIN SODIUM
     Dosage: STR: 7.5MG AND 5MG?1DF: 1 TABLET OF 7.5 MG ALTERATING WITH 5 MG
     Route: 048

REACTIONS (3)
  - Bronchitis [Unknown]
  - Pneumonia [Unknown]
  - Cardiac failure congestive [Unknown]

NARRATIVE: CASE EVENT DATE: 201410
